FAERS Safety Report 5474454-6 (Version None)
Quarter: 2007Q4

REPORT INFORMATION
  Report Type: 
  Country: None (occurrence: None)
  Receive Date: 20071002
  Receipt Date: 20070924
  Transmission Date: 20080405
  Serious: Yes (Hospitalization, Other)
  Sender: FDA-Public Use
  Company Number: PHEH2006US03444

PATIENT
  Age: 59 Year
  Sex: Male

DRUGS (14)
  1. AREDIA [Suspect]
     Indication: METASTASES TO BONE
     Dates: start: 20020404
  2. ZOMETA [Suspect]
     Indication: METASTASES TO BONE
     Dosage: UNK, UNK
     Dates: start: 20020404
  3. TAXOTERE [Concomitant]
     Dates: start: 20001215
  4. TAXOL [Concomitant]
  5. DIFLUCAN [Concomitant]
  6. MS CONTIN [Concomitant]
     Indication: PAIN
     Dosage: 200 MG, TID
     Route: 048
  7. LOVENOX [Concomitant]
  8. MSIR [Concomitant]
  9. ZOLOFT [Concomitant]
  10. PRILOSEC [Concomitant]
  11. DURAGESIC-100 [Concomitant]
     Indication: PAIN
     Dosage: 75 UG, UNK
     Route: 062
  12. DILAUDID [Concomitant]
     Indication: PAIN
     Dosage: 4 MG, Q2H PRN
  13. FENTANYL [Concomitant]
     Indication: PAIN
     Dosage: 75 UG, UNK
     Route: 062
  14. ACTIQ [Concomitant]
     Indication: PAIN

REACTIONS (23)
  - BONE DEBRIDEMENT [None]
  - BONE DISORDER [None]
  - BRONCHITIS [None]
  - CHRONIC OBSTRUCTIVE PULMONARY DISEASE [None]
  - DENTAL OPERATION [None]
  - DIARRHOEA [None]
  - DISEASE PROGRESSION [None]
  - EATING DISORDER [None]
  - HAEMATOMA [None]
  - HERNIA REPAIR [None]
  - IMPAIRED HEALING [None]
  - INFECTION [None]
  - MALIGNANT PLEURAL EFFUSION [None]
  - METASTATIC NEOPLASM [None]
  - OSTEONECROSIS [None]
  - PAIN IN EXTREMITY [None]
  - PAIN IN JAW [None]
  - PLEURAL EFFUSION [None]
  - PNEUMONIA [None]
  - THROMBOSIS [None]
  - TOOTH EXTRACTION [None]
  - TOOTHACHE [None]
  - VASCULAR OPERATION [None]
